FAERS Safety Report 5409441-7 (Version None)
Quarter: 2007Q3

REPORT INFORMATION
  Report Type: 
  Country: None (occurrence: None)
  Receive Date: 20070807
  Receipt Date: 20070807
  Transmission Date: 20080115
  Serious: Yes (Hospitalization)
  Sender: FDA-Public Use
  Company Number: None

PATIENT
  Age: 78 Year
  Sex: Male

DRUGS (1)
  1. METOPROLOL SUCCINATE [Suspect]
     Indication: HYPERTENSION
     Dosage: 100MG EVERY DAY PO
     Route: 048
     Dates: start: 20041028, end: 20070402

REACTIONS (5)
  - BRADYCARDIA [None]
  - FALL [None]
  - NODAL RHYTHM [None]
  - RIB FRACTURE [None]
  - SYNCOPE [None]
